FAERS Safety Report 11077332 (Version 1)
Quarter: 2015Q2

REPORT INFORMATION
  Report Type: Spontaneous
  Country: IT (occurrence: IT)
  Receive Date: 20150429
  Receipt Date: 20150429
  Transmission Date: 20150821
  Serious: Yes (Hospitalization)
  Sender: FDA-Public Use
  Company Number: IT-ROCHE-1570052

PATIENT
  Age: 72 Year
  Sex: Female

DRUGS (4)
  1. MYOCET [Suspect]
     Active Substance: DOXORUBICIN
     Indication: LYMPHOMA
     Dosage: 50 MG POWDER AND PRE-ADMIXTURES FOR CONCENTRATE
     Route: 042
     Dates: start: 20141206, end: 20150310
  2. MABTHERA [Suspect]
     Active Substance: RITUXIMAB
     Indication: LYMPHOMA
     Dosage: 2 X 100 MG 10 ML VIALS
     Route: 042
     Dates: start: 20141211, end: 20150311
  3. VINCRISTINE [Suspect]
     Active Substance: VINCRISTINE
     Indication: LYMPHOMA
     Dosage: 1 MG/ML SOLUTION FOR INJECTION FOR INTRAVENOUS USE
     Route: 040
     Dates: start: 20141206, end: 20150310
  4. ENDOXAN [Suspect]
     Active Substance: CYCLOPHOSPHAMIDE
     Indication: LYMPHOMA
     Dosage: 1 G POWDER FOR SOLUTION FOR INJECTION
     Route: 042
     Dates: start: 20141206, end: 20150310

REACTIONS (2)
  - Pain in extremity [Recovering/Resolving]
  - Blister [Recovering/Resolving]

NARRATIVE: CASE EVENT DATE: 20150313
